FAERS Safety Report 8168978-0 (Version None)
Quarter: 2012Q1

REPORT INFORMATION
  Report Type: 
  Country: None (occurrence: None)
  Receive Date: 20120227
  Receipt Date: 20120220
  Transmission Date: 20120608
  Serious: No
  Sender: FDA-Public Use
  Company Number: US-BAYER-2012-017400

PATIENT
  Sex: Female
  Weight: 78 kg

DRUGS (5)
  1. ALEVE (CAPLET) [Suspect]
     Indication: PAIN
     Dosage: 1 DF IN THE MORNING DAILY
     Route: 048
     Dates: start: 20120202
  2. ALEVE (CAPLET) [Suspect]
     Dosage: 2 DF AT 3PM OR 4PM DAILY
     Route: 048
     Dates: start: 20120202
  3. OXYCODONE HCL [Concomitant]
     Indication: PAIN
  4. VITAMIN TAB [Concomitant]
  5. FAMVIR [Concomitant]

REACTIONS (1)
  - NO ADVERSE EVENT [None]
